FAERS Safety Report 24012453 (Version 1)
Quarter: 2024Q2

REPORT INFORMATION
  Report Type: Spontaneous
  Country: AU (occurrence: AU)
  Receive Date: 20240625
  Receipt Date: 20240625
  Transmission Date: 20240715
  Serious: Yes (Hospitalization)
  Sender: FDA-Public Use
  Company Number: AU-MYLANLABS-2024M1043577

PATIENT
  Age: 83 Year
  Sex: Female

DRUGS (3)
  1. FLUCLOXACILLIN SODIUM [Suspect]
     Active Substance: FLUCLOXACILLIN SODIUM
     Indication: Evidence based treatment
     Dosage: 2 G INTERVAL: 4 HOUR
     Route: 042
  2. GENTAMICIN SULFATE [Suspect]
     Active Substance: GENTAMICIN SULFATE
     Indication: Evidence based treatment
     Dosage: 182 MG
     Route: 042
  3. PIPERACILLIN SODIUM\TAZOBACTAM SODIUM [Suspect]
     Active Substance: PIPERACILLIN SODIUM\TAZOBACTAM SODIUM
     Indication: Evidence based treatment
     Dosage: 1 DOSE ; INTERVAL: 6 HOUR
     Route: 042

REACTIONS (2)
  - Bone marrow disorder [Unknown]
  - Candida infection [Unknown]
